FAERS Safety Report 24128384 (Version 1)
Quarter: 2024Q3

REPORT INFORMATION
  Report Type: Report from Study
  Country: US (occurrence: None)
  Receive Date: 20240723
  Receipt Date: 20240723
  Transmission Date: 20241017
  Serious: Yes (Other)
  Sender: ASTRAZENECA
  Company Number: 2024A162775

PATIENT
  Age: 21817 Day
  Sex: Female

DRUGS (1)
  1. LYNPARZA [Suspect]
     Active Substance: OLAPARIB
     Indication: Breast cancer female
     Route: 048

REACTIONS (5)
  - Fluid retention [Unknown]
  - No adverse event [Unknown]
  - Nausea [Unknown]
  - Neck pain [Unknown]
  - Back pain [Unknown]

NARRATIVE: CASE EVENT DATE: 20240714
